FAERS Safety Report 7570749-0 (Version None)
Quarter: 2011Q2

REPORT INFORMATION
  Report Type: 
  Country: None (occurrence: None)
  Receive Date: 20110624
  Receipt Date: 20110613
  Transmission Date: 20111010
  Serious: Yes (Hospitalization)
  Sender: FDA-Public Use
  Company Number: US-ELI_LILLY_AND_COMPANY-US201106004194

PATIENT
  Sex: Female

DRUGS (4)
  1. HUMALOG [Suspect]
     Dosage: 26 U, EACH EVENING
     Dates: start: 20100501
  2. LANTUS [Concomitant]
     Dosage: UNK
  3. HUMALOG [Suspect]
     Dosage: 24 U, OTHER
     Dates: start: 20100501
  4. HUMALOG [Suspect]
     Indication: DIABETES MELLITUS
     Dosage: 22 U, EACH MORNING
     Dates: start: 20100501

REACTIONS (1)
  - HERNIA [None]
